FAERS Safety Report 5088862-9 (Version None)
Quarter: 2006Q3

REPORT INFORMATION
  Report Type: 
  Country: None (occurrence: None)
  Receive Date: 20060825
  Receipt Date: 20060522
  Transmission Date: 20061208
  Serious: Yes (Other)
  Sender: FDA-Public Use
  Company Number: DE-ALLERGAN-0600616US

PATIENT
  Sex: Male

DRUGS (2)
  1. LUMIGAN [Suspect]
     Indication: GLAUCOMA
     Dosage: UNK, QD
     Route: 047
     Dates: start: 20031021
  2. CORDANUM [Concomitant]

REACTIONS (1)
  - LIP AND/OR ORAL CAVITY CANCER [None]
